FAERS Safety Report 24127145 (Version 1)
Quarter: 2024Q3

REPORT INFORMATION
  Report Type: Spontaneous
  Country: US (occurrence: None)
  Receive Date: 20240722
  Receipt Date: 20240722
  Transmission Date: 20241017
  Serious: Yes (Other)
  Sender: Public
  Company Number: None

PATIENT
  Age: 75 Year
  Sex: Female
  Weight: 65.25 kg

DRUGS (19)
  1. AMBRISENTAN [Suspect]
     Active Substance: AMBRISENTAN
     Indication: Cardiovascular event prophylaxis
  2. ATORVASTATIN [Concomitant]
     Active Substance: ATORVASTATIN
  3. FUROSEMIDE [Concomitant]
     Active Substance: FUROSEMIDE
  4. MYCHOPHENOLATE [Concomitant]
  5. PRATONIX [Concomitant]
  6. SERTRALINE [Concomitant]
     Active Substance: SERTRALINE HYDROCHLORIDE
  7. TENOFOVIR [Concomitant]
     Active Substance: TENOFOVIR
  8. ARFORMOTEROL INHALER [Concomitant]
  9. BUDESONIDE [Concomitant]
     Active Substance: BUDESONIDE
  10. IPATROPIUM INHALER [Concomitant]
  11. OXYCODONE [Concomitant]
     Active Substance: OXYCODONE
  12. CLONAZEPAM [Concomitant]
     Active Substance: CLONAZEPAM
  13. ORENCIA [Concomitant]
     Active Substance: ABATACEPT
  14. TRULICITY [Concomitant]
     Active Substance: DULAGLUTIDE
  15. VITAMIN D [Concomitant]
     Active Substance: VITAMIN D NOS
  16. GENTILE IRON [Concomitant]
  17. CALCIUM CARBONATE [Concomitant]
     Active Substance: CALCIUM CARBONATE
  18. GUAIFENESIN [Concomitant]
     Active Substance: GUAIFENESIN
  19. OTHERS 1 PER DAY [Concomitant]

REACTIONS (4)
  - Chest pain [None]
  - Discomfort [None]
  - Loss of personal independence in daily activities [None]
  - Treatment noncompliance [None]

NARRATIVE: CASE EVENT DATE: 20240722
